FAERS Safety Report 6818692-6 (Version None)
Quarter: 2010Q3

REPORT INFORMATION
  Report Type: 
  Country: None (occurrence: None)
  Receive Date: 20100706
  Receipt Date: 20100622
  Transmission Date: 20110219
  Serious: Yes (Hospitalization, Other)
  Sender: FDA-Public Use
  Company Number: US-ELI_LILLY_AND_COMPANY-US201006006166

PATIENT
  Sex: Male

DRUGS (2)
  1. CYMBALTA [Suspect]
     Indication: DIABETIC NEUROPATHY
     Dosage: 60 MG, DAILY (1/D)
     Dates: end: 20100619
  2. ESOMEPRAZOLE MAGNESIUM [Concomitant]

REACTIONS (3)
  - COLORECTAL CANCER [None]
  - INTESTINAL OBSTRUCTION [None]
  - LETHARGY [None]
